FAERS Safety Report 22114166 (Version 1)
Quarter: 2023Q1

REPORT INFORMATION
  Report Type: Report from Study
  Country: JP (occurrence: JP)
  Receive Date: 20230320
  Receipt Date: 20230320
  Transmission Date: 20230417
  Serious: Yes (Hospitalization)
  Sender: FDA-Public Use
  Company Number: JP-SA-2022SA068749

PATIENT
  Age: 86 Year
  Sex: Female
  Weight: 52 kg

DRUGS (8)
  1. SARILUMAB [Suspect]
     Active Substance: SARILUMAB
     Indication: Rheumatoid arthritis
     Dosage: 200 MG, QOW
     Route: 058
     Dates: start: 20210816, end: 20220207
  2. RHEUMATREX [Concomitant]
     Active Substance: METHOTREXATE SODIUM
     Indication: Rheumatoid arthritis
     Dosage: 4 MG, QW
     Route: 048
     Dates: start: 20090728
  3. RHEUMATREX [Concomitant]
     Active Substance: METHOTREXATE SODIUM
     Dosage: 8 MG, QW
     Route: 048
     Dates: start: 20210518, end: 20210816
  4. RHEUMATREX [Concomitant]
     Active Substance: METHOTREXATE SODIUM
     Dosage: 6 MG, QW
     Route: 048
     Dates: start: 20210817, end: 20211115
  5. RHEUMATREX [Concomitant]
     Active Substance: METHOTREXATE SODIUM
     Dosage: 4 MG, QW
     Route: 048
     Dates: start: 20211116
  6. FOLIC ACID [Concomitant]
     Active Substance: FOLIC ACID
     Indication: Rheumatoid arthritis
     Dosage: 5 MG, QW
     Route: 048
     Dates: start: 20090728
  7. LANSOPRAZOLE [Concomitant]
     Active Substance: LANSOPRAZOLE
     Indication: Product used for unknown indication
     Dosage: 15 MG/D
     Route: 048
     Dates: start: 20090609
  8. ELDECALCITOL [Concomitant]
     Active Substance: ELDECALCITOL
     Indication: Product used for unknown indication
     Dosage: 0.75 MCG/D
     Route: 048
     Dates: start: 20141214

REACTIONS (2)
  - Cholangitis [Recovering/Resolving]
  - Bile duct stone [Recovered/Resolved]

NARRATIVE: CASE EVENT DATE: 20220207
